FAERS Safety Report 9943909 (Version 2)
Quarter: 2014Q1

REPORT INFORMATION
  Report Type: Spontaneous
  Country: US (occurrence: US)
  Receive Date: 20140303
  Receipt Date: 20140303
  Transmission Date: 20141002
  Serious: No
  Sender: FDA-Public Use
  Company Number: US-GILEAD-2012-0050054

PATIENT
  Sex: Female

DRUGS (9)
  1. RANEXA [Suspect]
     Indication: CORONARY ARTERY DISEASE
     Dosage: 500 MG, BID
     Dates: start: 20120126
  2. RANEXA [Suspect]
     Indication: CHEST DISCOMFORT
  3. LEVOXYL [Concomitant]
  4. ASPIRIN [Concomitant]
  5. TOPROL [Concomitant]
  6. AMBIEN [Concomitant]
  7. DIAZEPAM [Concomitant]
  8. CALCIUM [Concomitant]
  9. FISH OIL [Concomitant]

REACTIONS (1)
  - Burning sensation [Recovered/Resolved]
